FAERS Safety Report 23967626 (Version 1)
Quarter: 2024Q2

REPORT INFORMATION
  Report Type: Spontaneous
  Country: US (occurrence: US)
  Receive Date: 20240612
  Receipt Date: 20240612
  Transmission Date: 20240717
  Serious: No
  Sender: FDA-Public Use
  Company Number: US-SA-SAC20240605001460

PATIENT
  Sex: Female
  Weight: 76.203 kg

DRUGS (1)
  1. DUPIXENT [Suspect]
     Active Substance: DUPILUMAB
     Indication: Dermatitis atopic
     Dosage: 300 MG, QOW
     Route: 058
     Dates: start: 2022

REACTIONS (4)
  - Dermatitis atopic [Recovered/Resolved]
  - Rash [Unknown]
  - Intentional dose omission [Unknown]
  - Intentional product misuse [Unknown]
